FAERS Safety Report 10677169 (Version 2)
Quarter: 2015Q1

REPORT INFORMATION
  Report Type: Spontaneous
  Country: BR (occurrence: BR)
  Receive Date: 20141226
  Receipt Date: 20150113
  Transmission Date: 20150720
  Serious: Yes (Other)
  Sender: FDA-Public Use
  Company Number: BR-ASTRAZENECA-2014SE98290

PATIENT
  Age: 757 Month
  Sex: Female

DRUGS (3)
  1. VIMOVO [Suspect]
     Active Substance: ESOMEPRAZOLE MAGNESIUM\NAPROXEN
     Indication: CLAVICLE FRACTURE
     Dosage: ONE TABLET OF 500 MG + 20 MG
     Route: 048
     Dates: start: 201412, end: 201412
  2. OMEPRAZOLE. [Suspect]
     Active Substance: OMEPRAZOLE
     Indication: HIATUS HERNIA
     Route: 048
  3. VIMOVO [Suspect]
     Active Substance: ESOMEPRAZOLE MAGNESIUM\NAPROXEN
     Indication: TENDONITIS
     Dosage: ONE TABLET OF 500 MG + 20 MG
     Route: 048
     Dates: start: 201412, end: 201412

REACTIONS (8)
  - Dyspnoea [Recovered/Resolved]
  - Rhinitis [Recovered/Resolved]
  - Dizziness [Recovered/Resolved]
  - Product use issue [Recovered/Resolved]
  - Blindness transient [Recovered/Resolved]
  - Hypersensitivity [Recovered/Resolved]
  - Eye pruritus [Recovered/Resolved]
  - Malaise [Recovered/Resolved]

NARRATIVE: CASE EVENT DATE: 201412
